FAERS Safety Report 8893661 (Version 1)
Quarter: 2012Q4

REPORT INFORMATION
  Report Type: 
  Country: US (occurrence: US)
  Receive Date: 20121107
  Receipt Date: 20121107
  Transmission Date: 20130627
  Serious: No
  Sender: FDA-Public Use
  Company Number: US-AMGEN-USASP2011060431

PATIENT
  Age: 60 Year
  Sex: Female
  Weight: 37.64 kg

DRUGS (8)
  1. ENBREL [Suspect]
     Indication: PRODUCT USED FOR UNKNOWN INDICATION
     Dosage: 50 mg, qwk
     Route: 058
  2. SYNTHROID [Concomitant]
     Dosage: 75 mu, UNK
     Route: 048
  3. MULTIVITAMIN                       /00097801/ [Concomitant]
     Route: 048
  4. FOLIC ACID [Concomitant]
     Dosage: 1 mg, UNK
     Route: 048
  5. METHOTREXATE [Concomitant]
     Dosage: 2.5 mg, UNK
     Route: 048
  6. VITAMIN D /00107901/ [Concomitant]
     Route: 048
  7. CALCIUM [Concomitant]
     Route: 048
  8. TYLENOL SINUS CONGESTION + PAIN SEVERE [Concomitant]
     Route: 048

REACTIONS (2)
  - Injection site bruising [Unknown]
  - Injection site reaction [Unknown]
